FAERS Safety Report 6357087-9 (Version None)
Quarter: 2009Q3

REPORT INFORMATION
  Report Type: 
  Country: None (occurrence: None)
  Receive Date: 20090910
  Receipt Date: 20090825
  Transmission Date: 20100115
  Serious: Yes (Death, Hospitalization, Disabling)
  Sender: FDA-Public Use
  Company Number: 2009AL004117

PATIENT
  Age: 73 Year
  Sex: Female

DRUGS (18)
  1. DIGOXIN [Suspect]
     Dosage: PO; 0.125 MG, DAILY, PO
     Route: 048
     Dates: start: 20071227
  2. POTASSIUM CHLORIDE [Concomitant]
  3. AMIODARONE HCL [Concomitant]
  4. ATACAND [Concomitant]
  5. FUROSEMIDE [Concomitant]
  6. WARFARIN SODIUM [Concomitant]
  7. NYSTATIN [Concomitant]
  8. PROCRIT [Concomitant]
  9. FERROUS SULFATE TAB [Concomitant]
  10. ELOCON [Concomitant]
  11. RAGLAN [Concomitant]
  12. RYTHMOL [Concomitant]
  13. PREVACID [Concomitant]
  14. LEVOTHYROXINE SODIUM [Concomitant]
  15. LISINOPRIL [Concomitant]
  16. MAALOX [Concomitant]
  17. MILK OF MAGNESIA TAB [Concomitant]
  18. PERIDEX [Concomitant]

REACTIONS (19)
  - ANAEMIA [None]
  - BLOOD CREATININE INCREASED [None]
  - CARDIAC FAILURE [None]
  - CARDIOACTIVE DRUG LEVEL INCREASED [None]
  - CONDITION AGGRAVATED [None]
  - DYSPHAGIA [None]
  - ECZEMA [None]
  - HAEMATOCHEZIA [None]
  - HYPOTENSION [None]
  - HYPOTHYROIDISM [None]
  - INJURY [None]
  - MITRAL VALVE INCOMPETENCE [None]
  - OEDEMA [None]
  - ORTHOPNOEA [None]
  - PNEUMONIA [None]
  - POST PROCEDURAL COMPLICATION [None]
  - PYREXIA [None]
  - TRICUSPID VALVE INCOMPETENCE [None]
  - WEIGHT INCREASED [None]
